FAERS Safety Report 8837075 (Version 4)
Quarter: 2012Q4

REPORT INFORMATION
  Report Type: 
  Country: CA (occurrence: CA)
  Receive Date: 20121012
  Receipt Date: 20121130
  Transmission Date: 20130627
  Serious: Yes (Other)
  Sender: FDA-Public Use
  Company Number: CA-SANOFI-AVENTIS-2012SA058872

PATIENT
  Age: 64 Year
  Sex: Male

DRUGS (5)
  1. LANTUS [Suspect]
     Indication: TYPE 2 DIABETES MELLITUS
     Dosage: Dose:10 unit(s)
     Route: 058
     Dates: start: 201203
  2. LANTUS [Suspect]
     Indication: TYPE 2 DIABETES MELLITUS
     Dosage: Dose- 44 units, patient sometimes perform divided dosing as well
     Route: 058
  3. CLIKSTAR [Suspect]
     Indication: DEVICE THERAPY
     Dates: start: 201203
  4. CLIKSTAR [Suspect]
     Indication: DEVICE THERAPY
     Dates: start: 201203
  5. METFORMIN [Suspect]
     Indication: TYPE 2 DIABETES MELLITUS
     Dosage: strength: 500 mg
     Route: 048
     Dates: start: 201206

REACTIONS (12)
  - Pertussis [Not Recovered/Not Resolved]
  - Chest pain [Not Recovered/Not Resolved]
  - Pain in extremity [Not Recovered/Not Resolved]
  - Condition aggravated [Not Recovered/Not Resolved]
  - Abdominal distension [Not Recovered/Not Resolved]
  - Weight increased [Not Recovered/Not Resolved]
  - Myalgia [Not Recovered/Not Resolved]
  - Injection site reaction [Not Recovered/Not Resolved]
  - Injection site pain [Not Recovered/Not Resolved]
  - Injection site haemorrhage [Not Recovered/Not Resolved]
  - Blood glucose increased [Not Recovered/Not Resolved]
  - Drug administration error [Unknown]
